FAERS Safety Report 13263574 (Version 4)
Quarter: 2017Q3

REPORT INFORMATION
  Report Type: Spontaneous
  Country: FR (occurrence: FR)
  Receive Date: 20170223
  Receipt Date: 20170919
  Transmission Date: 20171127
  Serious: Yes (Congenital Anomaly, Other)
  Sender: FDA-Public Use
  Company Number: FR-ABBVIE-16P-056-1791361-00

PATIENT
  Sex: Female

DRUGS (1)
  1. DEPAKINE [Suspect]
     Active Substance: VALPROATE SODIUM
     Indication: MATERNAL EXPOSURE TIMING UNSPECIFIED
     Route: 064

REACTIONS (22)
  - Foot deformity [Unknown]
  - Ear, nose and throat examination abnormal [Unknown]
  - Haemangioma [Unknown]
  - Ear infection [Unknown]
  - Dysmorphism [Unknown]
  - Congenital nose malformation [Unknown]
  - Educational problem [Not Recovered/Not Resolved]
  - Scoliosis [Unknown]
  - Autism spectrum disorder [Unknown]
  - Seizure [Unknown]
  - Social (pragmatic) communication disorder [Unknown]
  - Emotional disorder [Unknown]
  - Foetal exposure during pregnancy [Unknown]
  - Abnormal behaviour [Not Recovered/Not Resolved]
  - Enuresis [Unknown]
  - Bradycardia [Unknown]
  - Speech disorder developmental [Unknown]
  - Hyperexplexia [Unknown]
  - Hypotonia [Unknown]
  - Developmental delay [Not Recovered/Not Resolved]
  - Language disorder [Not Recovered/Not Resolved]
  - Hypermobility syndrome [Unknown]

NARRATIVE: CASE EVENT DATE: 2004
